FAERS Safety Report 6101351-5 (Version None)
Quarter: 2009Q1

REPORT INFORMATION
  Report Type: 
  Country: None (occurrence: None)
  Receive Date: 20090303
  Receipt Date: 20090303
  Transmission Date: 20090719
  Serious: Yes (Hospitalization)
  Sender: FDA-Public Use
  Company Number: None

PATIENT
  Age: 38 Year
  Sex: Female
  Weight: 64.4108 kg

DRUGS (1)
  1. IMITREX [Suspect]
     Indication: MIGRAINE
     Dosage: 100 MG AS NEEDED PO
     Route: 048
     Dates: start: 20090201, end: 20090301

REACTIONS (3)
  - ACTIVITIES OF DAILY LIVING IMPAIRED [None]
  - MALAISE [None]
  - PRODUCT QUALITY ISSUE [None]
